FAERS Safety Report 5323477-6 (Version None)
Quarter: 2007Q2

REPORT INFORMATION
  Report Type: 
  Country: None (occurrence: None)
  Receive Date: 20070514
  Receipt Date: 20070509
  Transmission Date: 20071010
  Serious: Yes (Hospitalization)
  Sender: FDA-Public Use
  Company Number: PHRM2007FR00444

PATIENT
  Age: 86 Year
  Sex: Female

DRUGS (3)
  1. COTAREG [Suspect]
     Indication: HYPERTENSION
     Route: 048
     Dates: end: 20061101
  2. CORDARONE [Suspect]
     Indication: ATRIAL FIBRILLATION
     Route: 048
     Dates: start: 20010101, end: 20061113
  3. FOSAMAX [Suspect]
     Route: 048

REACTIONS (6)
  - COUGH [None]
  - DYSPNOEA [None]
  - GENERAL PHYSICAL HEALTH DETERIORATION [None]
  - PULMONARY FIBROSIS [None]
  - SILICOSIS [None]
  - STAPHYLOCOCCAL INFECTION [None]
